FAERS Safety Report 14507275 (Version 2)
Quarter: 2022Q3

REPORT INFORMATION
  Report Type: Spontaneous
  Country: US (occurrence: US)
  Receive Date: 20180208
  Receipt Date: 20220922
  Transmission Date: 20221026
  Serious: Yes (Other)
  Sender: FDA-Public Use
  Company Number: US-PURDUE-USA-2017-0140213

PATIENT
  Age: 58 Year
  Sex: Female

DRUGS (1)
  1. BUTRANS [Suspect]
     Active Substance: BUPRENORPHINE
     Indication: Arthralgia
     Dosage: 10 MCG/HR, WEEKLY
     Route: 062
     Dates: start: 201707, end: 20170810

REACTIONS (12)
  - Drug dependence [Unknown]
  - Dizziness [Not Recovered/Not Resolved]
  - Drug withdrawal syndrome [Unknown]
  - Gastrointestinal disorder [Unknown]
  - Tooth loss [Unknown]
  - Feeling abnormal [Unknown]
  - Amnesia [Unknown]
  - Weight increased [Unknown]
  - Drug ineffective [Unknown]
  - Peripheral swelling [Unknown]
  - Pain [Unknown]
  - Emotional distress [Unknown]

NARRATIVE: CASE EVENT DATE: 20170804
